FAERS Safety Report 5759352-2 (Version None)
Quarter: 2008Q2

REPORT INFORMATION
  Report Type: 
  Country: None (occurrence: None)
  Receive Date: 20080605
  Receipt Date: 20080523
  Transmission Date: 20081010
  Serious: Yes (Hospitalization, Other)
  Sender: FDA-Public Use
  Company Number: IT-JNJFOC-20080505031

PATIENT
  Age: 24 Year
  Sex: Male

DRUGS (5)
  1. HALOPERIDOL [Suspect]
     Dosage: INTRAVENOUS
     Route: 048
  2. HALOPERIDOL [Suspect]
     Route: 048
  3. HALOPERIDOL [Suspect]
     Route: 048
  4. HALOPERIDOL [Suspect]
     Route: 048
  5. HALOPERIDOL [Suspect]
     Indication: SCHIZOPHRENIA, PARANOID TYPE
     Route: 048

REACTIONS (3)
  - ACUTE PSYCHOSIS [None]
  - EXTRAPYRAMIDAL DISORDER [None]
  - NEUROLEPTIC MALIGNANT SYNDROME [None]
